FAERS Safety Report 19850120 (Version 1)
Quarter: 2021Q3

REPORT INFORMATION
  Report Type: Spontaneous
  Country: US (occurrence: US)
  Receive Date: 20210917
  Receipt Date: 20210917
  Transmission Date: 20211014
  Serious: No
  Sender: FDA-Public Use
  Company Number: US-NOVOPROD-830377

PATIENT
  Sex: Female

DRUGS (1)
  1. WEGOVY [Suspect]
     Active Substance: SEMAGLUTIDE
     Indication: POLYCYSTIC OVARIES
     Dosage: 0.25 MG
     Route: 058
     Dates: start: 20210712

REACTIONS (5)
  - Off label use [Unknown]
  - Wrong technique in product usage process [Unknown]
  - Device leakage [Not Recovered/Not Resolved]
  - Neurotransmitter level altered [Unknown]
  - Injection site extravasation [Not Recovered/Not Resolved]
